FAERS Safety Report 12059806 (Version 1)
Quarter: 2016Q1

REPORT INFORMATION
  Report Type: Spontaneous
  Country: CA (occurrence: CA)
  Receive Date: 20160210
  Receipt Date: 20160210
  Transmission Date: 20160526
  Serious: Yes (Hospitalization)
  Sender: FDA-Public Use
  Company Number: CA-PFIZER INC-2016067034

PATIENT
  Age: 71 Year
  Sex: Male

DRUGS (2)
  1. TRANEXAMIC ACID. [Suspect]
     Active Substance: TRANEXAMIC ACID
     Dosage: 0.5 G, CYCLIC (1 EVERY 1 HOUR)
  2. TRANEXAMIC ACID. [Suspect]
     Active Substance: TRANEXAMIC ACID
     Dosage: 1 G, UNK

REACTIONS (3)
  - Loss of consciousness [Unknown]
  - Generalised tonic-clonic seizure [Unknown]
  - Cardiac arrest [Unknown]
